FAERS Safety Report 18311237 (Version 4)
Quarter: 2020Q4

REPORT INFORMATION
  Report Type: Spontaneous
  Country: US (occurrence: US)
  Receive Date: 20200925
  Receipt Date: 20201104
  Transmission Date: 20210113
  Serious: No
  Sender: FDA-Public Use
  Company Number: US-AMGEN-USASP2020155156

PATIENT
  Age: 85 Year
  Sex: Female

DRUGS (4)
  1. KYPROLIS [Suspect]
     Active Substance: CARFILZOMIB
     Dosage: 80 MILLIGRAM
     Route: 042
  2. KYPROLIS [Suspect]
     Active Substance: CARFILZOMIB
     Dosage: 80 MILLIGRAM
     Route: 042
  3. KYPROLIS [Suspect]
     Active Substance: CARFILZOMIB
     Indication: PLASMA CELL MYELOMA
     Dosage: 80 MILLIGRAM
     Route: 042
  4. KYPROLIS [Suspect]
     Active Substance: CARFILZOMIB
     Dosage: 80 MILLIGRAM
     Route: 042

REACTIONS (1)
  - Intercepted product preparation error [Unknown]

NARRATIVE: CASE EVENT DATE: 20200923
